FAERS Safety Report 13928203 (Version 3)
Quarter: 2024Q1

REPORT INFORMATION
  Report Type: Spontaneous
  Country: US (occurrence: US)
  Receive Date: 20170901
  Receipt Date: 20240329
  Transmission Date: 20240410
  Serious: Yes (Hospitalization, Other)
  Sender: FDA-Public Use
  Company Number: None

PATIENT
  Age: 59 Year
  Sex: Female

DRUGS (11)
  1. LINEZOLID [Interacting]
     Active Substance: LINEZOLID
     Indication: Cellulitis staphylococcal
     Dosage: 600 MILLIGRAM, BID
     Route: 042
  2. LINEZOLID [Interacting]
     Active Substance: LINEZOLID
     Indication: Localised infection
  3. IBUPROFEN [Suspect]
     Active Substance: IBUPROFEN
     Indication: Product used for unknown indication
     Dosage: UNK
     Route: 065
  4. VANCOMYCIN [Suspect]
     Active Substance: VANCOMYCIN
     Indication: Product used for unknown indication
     Dosage: UNK
     Route: 065
  5. VANCOMYCIN [Suspect]
     Active Substance: VANCOMYCIN
     Dosage: UNK
     Route: 065
  6. AZITHROMYCIN [Suspect]
     Active Substance: AZITHROMYCIN
     Indication: Product used for unknown indication
     Dosage: UNK
     Route: 065
  7. ASPIRIN [Suspect]
     Active Substance: ASPIRIN
     Indication: Product used for unknown indication
     Dosage: UNK
     Route: 065
  8. MOXIFLOXACIN [Suspect]
     Active Substance: MOXIFLOXACIN
     Indication: Product used for unknown indication
     Dosage: UNK
     Route: 065
  9. WARFARIN [Interacting]
     Active Substance: WARFARIN
     Indication: Anticoagulant therapy
     Dosage: UNK
     Route: 065
  10. WARFARIN [Interacting]
     Active Substance: WARFARIN
     Indication: Embolism venous
  11. INSULIN NOS [Concomitant]
     Active Substance: INSULIN NOS
     Indication: Diabetes mellitus
     Dosage: UNK
     Route: 065

REACTIONS (12)
  - Septic shock [Recovered/Resolved]
  - Thrombocytopenia [Recovered/Resolved]
  - Lactic acidosis [Recovering/Resolving]
  - Hypoglycaemia [Recovered/Resolved]
  - Anticoagulation drug level above therapeutic [Recovering/Resolving]
  - Transaminases abnormal [Recovered/Resolved]
  - Toxicity to various agents [Unknown]
  - Hypotension [Recovering/Resolving]
  - Hypertransaminasaemia [Recovered/Resolved]
  - Hypercoagulation [Recovering/Resolving]
  - Drug interaction [Unknown]
  - Drug hypersensitivity [Unknown]
